FAERS Safety Report 12429240 (Version 2)
Quarter: 2016Q2

REPORT INFORMATION
  Report Type: Spontaneous
  Country: FR (occurrence: FR)
  Receive Date: 20160602
  Receipt Date: 20160629
  Transmission Date: 20160815
  Serious: Yes (Hospitalization)
  Sender: FDA-Public Use
  Company Number: FR-ASTRAZENECA-2016SE57524

PATIENT
  Age: 1 Day
  Sex: Male
  Weight: 3.3 kg

DRUGS (9)
  1. XEROQUEL [Suspect]
     Active Substance: QUETIAPINE FUMARATE
     Indication: BIPOLAR DISORDER
     Route: 064
     Dates: start: 20150720, end: 20160228
  2. XEROQUEL [Suspect]
     Active Substance: QUETIAPINE FUMARATE
     Indication: BIPOLAR DISORDER
     Dosage: PROGRESSIVE REDUCTION TO 50 MG
     Route: 064
     Dates: start: 20160229, end: 20160415
  3. VALIUM [Suspect]
     Active Substance: DIAZEPAM
     Dosage: 5.0MG UNKNOWN
     Route: 064
  4. SERESTA [Suspect]
     Active Substance: OXAZEPAM
     Indication: BIPOLAR DISORDER
     Route: 064
     Dates: start: 20160101
  5. INEXIUM [Suspect]
     Active Substance: ESOMEPRAZOLE
     Dosage: 40.0MG UNKNOWN
     Route: 064
  6. SERESTA [Suspect]
     Active Substance: OXAZEPAM
     Indication: BIPOLAR DISORDER
     Dosage: 10.0MG UNKNOWN
     Route: 064
     Dates: end: 20160415
  7. LEVOCETIRIZINE [Suspect]
     Active Substance: LEVOCETIRIZINE
     Route: 064
     Dates: start: 20150720, end: 20160415
  8. VALIUM [Suspect]
     Active Substance: DIAZEPAM
     Dosage: 2.0MG UNKNOWN
     Route: 064
     Dates: end: 20151114
  9. SERESTA [Suspect]
     Active Substance: OXAZEPAM
     Indication: BIPOLAR DISORDER
     Route: 064
     Dates: start: 20150720, end: 20151231

REACTIONS (6)
  - Blood lactic acid increased [Unknown]
  - Blood creatine phosphokinase increased [Recovered/Resolved]
  - Umbilical cord abnormality [Unknown]
  - Bradycardia neonatal [Recovered/Resolved]
  - Apgar score low [Unknown]
  - Aspartate aminotransferase increased [Unknown]

NARRATIVE: CASE EVENT DATE: 20160415
